FAERS Safety Report 9621579 (Version 2)
Quarter: 2013Q4

REPORT INFORMATION
  Report Type: Spontaneous
  Country: US (occurrence: US)
  Receive Date: 20131015
  Receipt Date: 20131113
  Transmission Date: 20140711
  Serious: Yes (Other)
  Sender: FDA-Public Use
  Company Number: US-PFIZER INC-2013293658

PATIENT
  Age: 36 Year
  Sex: Male

DRUGS (5)
  1. LYRICA [Suspect]
     Indication: PAIN
     Dosage: 150 MG, 1X/DAY
  2. LYRICA [Suspect]
     Dosage: 150 MG, 4X/DAY
  3. IBUPROFEN [Concomitant]
     Dosage: UNK
  4. SERTRALINE [Concomitant]
     Dosage: UNK
  5. CLONAZEPAM [Concomitant]
     Dosage: UNK

REACTIONS (2)
  - Brachial plexus injury [Unknown]
  - Drug ineffective [Unknown]
